FAERS Safety Report 8107087 (Version 3)
Quarter: 2013Q4

REPORT INFORMATION
  Report Type: Spontaneous
  Country: US (occurrence: US)
  Receive Date: 20110825
  Receipt Date: 20131202
  Transmission Date: 20140711
  Serious: Yes (Hospitalization, Other)
  Sender: FDA-Public Use
  Company Number: US-BAYER-2011-075005

PATIENT
  Age: 25 Year
  Sex: Female
  Weight: 52.15 kg

DRUGS (15)
  1. YAZ [Suspect]
     Indication: CONTRACEPTION
     Dosage: UNK
     Dates: start: 2007
  2. HYDROCODONE/ACETAMINOPHEN [Concomitant]
     Indication: PAIN
     Dosage: 5-500 MG
     Dates: start: 20080813
  3. IBUPROFEN [Concomitant]
     Indication: PAIN
     Dosage: 600 MG, UNK
     Dates: start: 20080811
  4. IBUPROFEN [Concomitant]
     Indication: PAIN
     Dosage: 600 MG, UNK
     Route: 048
     Dates: start: 20080812
  5. PRENATAL VITAMINS [VIT C,B5,B12,D2,B3,B6,RETINOL PALMIT,B2,B1 MONO [Concomitant]
     Dosage: 1 DAILY
     Route: 048
     Dates: start: 20080811
  6. PHENERGAN [Concomitant]
     Dosage: 25 MG, PRN
     Route: 048
     Dates: start: 20080812
  7. MAGNESIUM HYDROXIDE [Concomitant]
     Dosage: 30 ML, UNK
     Route: 048
     Dates: start: 20080811
  8. DOCUSATE SODIUM [Concomitant]
     Dosage: 100 MG, UNK
     Route: 048
     Dates: start: 20080812
  9. VICODIN [Concomitant]
     Indication: PAIN
     Dosage: 5-500 EVERY 4 HOURS, PRN
     Route: 048
     Dates: start: 20080812, end: 20080814
  10. PRAMOXINE HYDROCHLORIDE [Concomitant]
     Dosage: UNK UNK, PRN
     Route: 061
     Dates: start: 20080811
  11. DERMOPLAST [BENZETHON,BENZOC,BENZOXIQUINE,ISOPROPAN,MENTHOL,METHYL [Concomitant]
     Dosage: UNK UNK, PRN
     Route: 061
     Dates: start: 20080811
  12. LACTATED RINGER^S [Concomitant]
     Dosage: 1000 ML, UNK
     Route: 042
     Dates: start: 20080811
  13. AMPICILLIN [Concomitant]
     Dosage: 2 GMS, Q 4 [HOURS] UNTIL DELIVERY
     Dates: start: 20080811, end: 20080812
  14. DEXTROSE IN LACTATED RINGER^S [Concomitant]
     Dosage: 1000 ML, UNK
     Route: 042
     Dates: start: 20080811, end: 20080812
  15. ZOFRAN [Concomitant]
     Dosage: 4 MG, PRN
     Dates: start: 20080811

REACTIONS (4)
  - Gallbladder injury [None]
  - Biliary dyskinesia [None]
  - Cholecystitis chronic [None]
  - Injury [None]
